FAERS Safety Report 7608179-5 (Version None)
Quarter: 2011Q3

REPORT INFORMATION
  Report Type: 
  Country: None (occurrence: None)
  Receive Date: 20110714
  Receipt Date: 20110705
  Transmission Date: 20111222
  Serious: Yes (Hospitalization)
  Sender: FDA-Public Use
  Company Number: GB-TEVA-290285ISR

PATIENT
  Age: 49 Year
  Sex: Female
  Weight: 54 kg

DRUGS (2)
  1. NAPROXEN [Suspect]
     Indication: BACK PAIN
     Route: 048
     Dates: start: 20110620, end: 20110620
  2. BACLOFEN [Suspect]
     Indication: BACK PAIN
     Route: 048
     Dates: start: 20110620, end: 20110620

REACTIONS (6)
  - MALAISE [None]
  - OCULAR HYPERAEMIA [None]
  - SKIN REACTION [None]
  - CHEILITIS [None]
  - RASH [None]
  - LIP SWELLING [None]
